FAERS Safety Report 25218132 (Version 1)
Quarter: 2025Q2

REPORT INFORMATION
  Report Type: Spontaneous
  Country: ES (occurrence: ES)
  Receive Date: 20250421
  Receipt Date: 20250421
  Transmission Date: 20250716
  Serious: Yes (Other)
  Sender: AUROBINDO
  Company Number: ES-AMAROX PHARMA GMBH-AMR2021ES01679

PATIENT
  Age: 14 Year
  Sex: Female

DRUGS (6)
  1. GABAPENTIN [Suspect]
     Active Substance: GABAPENTIN
     Indication: Allodynia
     Route: 065
  2. GABAPENTIN [Suspect]
     Active Substance: GABAPENTIN
     Indication: Paraesthesia
  3. GABAPENTIN [Suspect]
     Active Substance: GABAPENTIN
     Indication: Hyperpathia
  4. TRAMADOL [Suspect]
     Active Substance: TRAMADOL
     Indication: Allodynia
     Route: 065
  5. TRAMADOL [Suspect]
     Active Substance: TRAMADOL
     Indication: Paraesthesia
  6. TRAMADOL [Suspect]
     Active Substance: TRAMADOL
     Indication: Hyperpathia

REACTIONS (1)
  - Drug ineffective [Unknown]
